FAERS Safety Report 13217944 (Version 1)
Quarter: 2017Q1

REPORT INFORMATION
  Report Type: Other
  Country: US (occurrence: US)
  Receive Date: 20170210
  Receipt Date: 20170210
  Transmission Date: 20170428
  Serious: No
  Sender: FDA-Public Use
  Company Number: US-ACORDA-ACO_125751_2016

PATIENT
  Age: 73 Year
  Sex: Male
  Weight: 88.44 kg

DRUGS (3)
  1. AMPYRA [Suspect]
     Active Substance: DALFAMPRIDINE
     Indication: OFF LABEL USE
  2. AMPYRA [Suspect]
     Active Substance: DALFAMPRIDINE
     Indication: OFF LABEL USE
  3. AMPYRA [Suspect]
     Active Substance: DALFAMPRIDINE
     Indication: GAIT DISTURBANCE
     Dosage: 20 MG, BID
     Route: 048
     Dates: start: 201302

REACTIONS (4)
  - Fall [Recovered/Resolved]
  - Off label use [Unknown]
  - Laceration [Recovering/Resolving]
  - Wound drainage [Not Recovered/Not Resolved]

NARRATIVE: CASE EVENT DATE: 20160608
